FAERS Safety Report 7397591-8 (Version None)
Quarter: 2011Q1

REPORT INFORMATION
  Report Type: 
  Country: None (occurrence: None)
  Receive Date: 20110328
  Receipt Date: 20110316
  Transmission Date: 20110831
  Serious: No
  Sender: FDA-Public Use
  Company Number: 2011-00110

PATIENT
  Age: 89 Year
  Sex: Female
  Weight: 68.0396 kg

DRUGS (10)
  1. ZICAM COLD REMEDY RAPIDMELTS [Suspect]
     Dosage: Q 3 HOURS X 2 DAYS
     Dates: start: 20110315, end: 20110316
  2. CANDELION ROOT [Concomitant]
  3. COQ10 [Concomitant]
  4. EPA FISH OIL [Concomitant]
  5. SWEET WHEAT ^POWDER PILL^ [Concomitant]
  6. TIMPOTIC EYE DROPS [Concomitant]
  7. ONE-A-DAY MULTIVITAMIN [Concomitant]
  8. A ^GARLIC BASED^ SUPPLEMENT [Concomitant]
  9. ATENOLOL [Concomitant]
  10. CELADRIN [Concomitant]

REACTIONS (1)
  - AGEUSIA [None]
